FAERS Safety Report 25218243 (Version 3)
Quarter: 2025Q2

REPORT INFORMATION
  Report Type: Spontaneous
  Country: JP (occurrence: JP)
  Receive Date: 20250421
  Receipt Date: 20250605
  Transmission Date: 20250717
  Serious: Yes (Hospitalization)
  Sender: AMGEN
  Company Number: JP-AMGEN-JPNSP2025075312

PATIENT
  Age: 81 Year
  Sex: Male

DRUGS (5)
  1. EVENITY [Suspect]
     Active Substance: ROMOSOZUMAB-AQQG
     Indication: Osteoporosis
     Dosage: 210 MILLIGRAM, QMO
     Route: 058
     Dates: start: 20240408, end: 20250207
  2. BREZTRI [Concomitant]
     Active Substance: BUDESONIDE\FORMOTEROL\GLYCOPYRROLATE
     Indication: Emphysema
     Dosage: UNK, BID (2 INHALATIONS PER TIME)
  3. ELDECALCITOL [Concomitant]
     Active Substance: ELDECALCITOL
     Indication: Osteoporosis
     Dosage: 0.75 MICROGRAM, QD
  4. ESOMEPRAZOLE [Concomitant]
     Active Substance: ESOMEPRAZOLE
  5. AZOSEMIDE [Concomitant]
     Active Substance: AZOSEMIDE
     Dosage: 30 MILLIGRAM, QD

REACTIONS (1)
  - Deep vein thrombosis [Recovered/Resolved]

NARRATIVE: CASE EVENT DATE: 20250303
